FAERS Safety Report 11566857 (Version 2)
Quarter: 2015Q4

REPORT INFORMATION
  Report Type: Spontaneous
  Country: US (occurrence: US)
  Receive Date: 20150929
  Receipt Date: 20151110
  Transmission Date: 20160304
  Serious: Yes (Life-Threatening, Hospitalization, Other)
  Sender: FDA-Public Use
  Company Number: US-THE MEDICINES COMPANY-US-MDCO-15-00424

PATIENT
  Age: 64 Year
  Sex: Female
  Weight: 112 kg

DRUGS (2)
  1. ANGIOMAX [Suspect]
     Active Substance: BIVALIRUDIN
     Indication: PERCUTANEOUS CORONARY INTERVENTION
     Route: 040
  2. ANGIOMAX [Suspect]
     Active Substance: BIVALIRUDIN
     Dosage: 38.5ML/HR
     Route: 041

REACTIONS (2)
  - Coagulation time abnormal [Unknown]
  - Coronary artery thrombosis [Recovered/Resolved]

NARRATIVE: CASE EVENT DATE: 20150909
